FAERS Safety Report 9683582 (Version 2)
Quarter: 2014Q2

REPORT INFORMATION
  Report Type: Spontaneous
  Country: US (occurrence: US)
  Receive Date: 20131112
  Receipt Date: 20140422
  Transmission Date: 20141212
  Serious: Yes (Congenital Anomaly)
  Sender: FDA-Public Use
  Company Number: US-BAYER-2013-135024

PATIENT
  Sex: Male

DRUGS (2)
  1. MIRENA [Suspect]
     Route: 064
  2. LEUCOVORIN [Concomitant]

REACTIONS (10)
  - Autism [None]
  - Congenital brain damage [None]
  - Growth retardation [None]
  - Mental retardation [None]
  - Aphasia [None]
  - Motor developmental delay [None]
  - Abasia [None]
  - Injury [None]
  - Disability [None]
  - General physical health deterioration [None]
